FAERS Safety Report 18206308 (Version 4)
Quarter: 2020Q3

REPORT INFORMATION
  Report Type: Spontaneous
  Country: ES (occurrence: ES)
  Receive Date: 20200827
  Receipt Date: 20200923
  Transmission Date: 20201103
  Serious: Yes (Other)
  Sender: FDA-Public Use
  Company Number: ES-ALEXION-A202012253

PATIENT
  Age: 42 Year
  Sex: Female
  Weight: 46.2 kg

DRUGS (10)
  1. OMEPRAZOLE. [Concomitant]
     Active Substance: OMEPRAZOLE
     Indication: PRODUCT USED FOR UNKNOWN INDICATION
     Dosage: 20 MG, QD
     Route: 065
     Dates: start: 20200730
  2. MASTICAL D [Concomitant]
     Indication: HYPOCALCAEMIA
     Dosage: 500 MG, Q8H
     Route: 048
     Dates: start: 20200804, end: 20200904
  3. SEVELAMER [Concomitant]
     Active Substance: SEVELAMER
     Indication: PRODUCT USED FOR UNKNOWN INDICATION
     Dosage: 2.4 G, QD
     Route: 065
     Dates: start: 20200806, end: 20200815
  4. FUROSEMIDE. [Concomitant]
     Active Substance: FUROSEMIDE
     Indication: PRODUCT USED FOR UNKNOWN INDICATION
     Dosage: VARIABLE DOSAGE
     Route: 042
     Dates: start: 20200729, end: 20200825
  5. SOLIRIS [Suspect]
     Active Substance: ECULIZUMAB
     Indication: ATYPICAL HAEMOLYTIC URAEMIC SYNDROME
     Dosage: 900 MG, QW
     Route: 042
     Dates: start: 20200805, end: 20200825
  6. SOLIRIS [Suspect]
     Active Substance: ECULIZUMAB
     Dosage: 1500 MG, Q2W
     Route: 042
     Dates: start: 20200901
  7. SOLIRIS [Suspect]
     Active Substance: ECULIZUMAB
     Dosage: UNK
     Route: 065
  8. SOLIRIS [Suspect]
     Active Substance: ECULIZUMAB
     Dosage: 600 MG, SINGLE
     Route: 065
     Dates: start: 20200817, end: 20200817
  9. MEROPENEM. [Concomitant]
     Active Substance: MEROPENEM
     Indication: BACTERIAL INFECTION
     Dosage: 1 G, Q12H
     Route: 042
     Dates: start: 20200730, end: 20200814
  10. PIPERACILIN/TAZOBACTAM [Concomitant]
     Active Substance: PIPERACILLIN SODIUM\TAZOBACTAM SODIUM
     Indication: PRODUCT USED FOR UNKNOWN INDICATION
     Dosage: 4 G, Q8H
     Route: 065
     Dates: start: 20200818, end: 20200902

REACTIONS (8)
  - Hypertension [Unknown]
  - Proteinuria [Recovering/Resolving]
  - Renal impairment [Unknown]
  - Therapy non-responder [Recovering/Resolving]
  - Haemolysis [Unknown]
  - Thrombocytopenia [Recovered/Resolved]
  - Abdominal pain [Unknown]
  - Gastrointestinal infection [Unknown]

NARRATIVE: CASE EVENT DATE: 202008
